FAERS Safety Report 13442496 (Version 1)
Quarter: 2017Q2

REPORT INFORMATION
  Report Type: Spontaneous
  Country: US (occurrence: US)
  Receive Date: 20170413
  Receipt Date: 20170413
  Transmission Date: 20170830
  Serious: No
  Sender: FDA-Public Use
  Company Number: None

PATIENT
  Age: 61 Year
  Sex: Female
  Weight: 73.35 kg

DRUGS (1)
  1. TEGRETOL XR [Suspect]
     Active Substance: CARBAMAZEPINE
     Indication: EPILEPSY
     Dosage: ?          OTHER FREQUENCY:3 TABS TWICE A DAY;?
     Route: 048

REACTIONS (3)
  - Musculoskeletal disorder [None]
  - Therapy change [None]
  - Product substitution issue [None]
